FAERS Safety Report 4510982-5 (Version None)
Quarter: 2004Q3

REPORT INFORMATION
  Report Type: 
  Country: None (occurrence: None)
  Receive Date: 20040928
  Receipt Date: 20040818
  Transmission Date: 20050211
  Serious: Yes (Death)
  Sender: FDA-Public Use
  Company Number: 04P-163-0270953-00

PATIENT
  Age: 84 Year
  Sex: Female
  Weight: 76.6579 kg

DRUGS (14)
  1. HUMIRA [Suspect]
     Indication: RHEUMATOID ARTHRITIS
     Dosage: 40 MG, 1 IN 2 WK, SUBCUTANEOUS
     Route: 058
     Dates: start: 20031201
  2. ASPIRIN [Concomitant]
  3. ALENDRONATE SODIUM [Concomitant]
  4. CALCIUM [Concomitant]
  5. METHOTREXATE SODIUM [Concomitant]
  6. FOLIC ACID [Concomitant]
  7. PROPACET 100 [Concomitant]
  8. GLUCOSAMINE [Concomitant]
  9. ENALAPRIL [Concomitant]
  10. DORZOLAMIDE HYDROCHLORIDE [Concomitant]
  11. TIMOLOL MALEATE [Concomitant]
  12. CYCLOBENZAPRINE HYDROCHLORIDE [Concomitant]
  13. PAROXETINE HYDROCHLORIDE [Concomitant]
  14. BRIMONIDINE TARTRATE [Concomitant]

REACTIONS (1)
  - DEATH [None]
